FAERS Safety Report 10156681 (Version 1)
Quarter: 2014Q2

REPORT INFORMATION
  Report Type: Spontaneous
  Country: US (occurrence: None)
  Receive Date: 20140505
  Receipt Date: 20140505
  Transmission Date: 20141212
  Serious: Yes (Other)
  Sender: FDA-Public Use
  Company Number: SYM-2014-20144

PATIENT
  Sex: Female

DRUGS (2)
  1. CARDIZEM [Suspect]
     Indication: PRODUCT USED FOR UNKNOWN INDICATION
  2. TIKOSYN (DOFETILIDE) (DOFETILIDE) [Concomitant]

REACTIONS (2)
  - Anaphylactic reaction [None]
  - Documented hypersensitivity to administered drug [None]
